FAERS Safety Report 19145948 (Version 1)
Quarter: 2021Q2

REPORT INFORMATION
  Report Type: Spontaneous
  Country: US (occurrence: US)
  Receive Date: 20210416
  Receipt Date: 20210416
  Transmission Date: 20210717
  Serious: Yes (Hospitalization, Other)
  Sender: FDA-Public Use
  Company Number: US-AMNEAL PHARMACEUTICALS-2021-AMRX-01195

PATIENT
  Age: 45 Year
  Sex: Female

DRUGS (11)
  1. VITAMIN D [COLECALCIFEROL] [Concomitant]
     Active Substance: CHOLECALCIFEROL
     Indication: ANAEMIA
     Dosage: 1 DOSAGE FORM, QD
     Route: 048
     Dates: start: 20200911
  2. LEVOTHYROXINE. [Concomitant]
     Active Substance: LEVOTHYROXINE
     Indication: HYPOTHYROIDISM
     Dosage: 1 DOSAGE FORM, QD
     Route: 048
     Dates: start: 2017
  3. BUPROPION. [Concomitant]
     Active Substance: BUPROPION
     Indication: MIGRAINE
     Dosage: 1 DOSAGE FORM, QD
     Route: 048
     Dates: start: 20190503
  4. PANTOPRAZOLE [Concomitant]
     Active Substance: PANTOPRAZOLE
     Indication: PROPHYLAXIS AGAINST GASTROINTESTINAL ULCER
     Dosage: 1 DOSAGE FORM, QD
     Route: 048
     Dates: start: 20200713
  5. LISINOPRIL. [Concomitant]
     Active Substance: LISINOPRIL
     Indication: HYPERTENSION
     Dosage: 1 DOSAGE FORM, QD
     Route: 048
     Dates: start: 20190503
  6. HYDROCHLOROTHIAZIDE. [Concomitant]
     Active Substance: HYDROCHLOROTHIAZIDE
     Indication: HYPERTENSION
     Dosage: 1 DOSAGE FORM, QD
     Route: 048
     Dates: start: 20190503
  7. ACTIVELLA [Suspect]
     Active Substance: ESTRADIOL\NORETHINDRONE ACETATE
     Indication: ENDOMETRIOSIS
     Dosage: 1 DOSAGE FORM, QD
     Route: 048
     Dates: start: 20200206, end: 20210128
  8. CORTISONE [Concomitant]
     Active Substance: CORTISONE
     Indication: DERMATITIS ATOPIC
     Dosage: 3 DOSAGE FORM, QD
     Route: 061
     Dates: start: 2012
  9. MULTIVITAMINS [VITAMINS NOS] [Concomitant]
     Active Substance: VITAMINS
     Indication: ANAEMIA
     Dosage: 1 TABLETS, QD
     Route: 048
     Dates: start: 20200911
  10. ELAGOLIX [Suspect]
     Active Substance: ELAGOLIX
     Indication: ENDOMETRIOSIS
     Dosage: 200 MILLIGRAM, 2 /DAY
     Route: 048
     Dates: start: 20200206, end: 20210128
  11. EXCEDRIN [ACETYLSALICYLIC ACID;CAFFEINE;PARACETAMOL;SALICYLAMIDE] [Concomitant]
     Active Substance: ACETAMINOPHEN\ASPIRIN\CAFFEINE\SALICYLAMIDE
     Indication: MIGRAINE
     Dosage: AS REQUIRED
     Route: 048
     Dates: start: 1986

REACTIONS (2)
  - Alcohol poisoning [Recovered/Resolved]
  - Suicidal ideation [Unknown]

NARRATIVE: CASE EVENT DATE: 20210215
